FAERS Safety Report 8564130-5 (Version None)
Quarter: 2012Q3

REPORT INFORMATION
  Report Type: 
  Country: None (occurrence: None)
  Receive Date: 20120723
  Receipt Date: 20120715
  Transmission Date: 20120928
  Serious: Yes (Other)
  Sender: FDA-Public Use
  Company Number: 2012-00140

PATIENT
  Age: 24 Year
  Sex: Female
  Weight: 56.6996 kg

DRUGS (2)
  1. OXYMETAZOLINE HYDROCHLORIDE SPRAY [Suspect]
     Indication: RESPIRATORY TRACT CONGESTION
     Dosage: 4-5 TIMES DAILY
     Dates: start: 20120515, end: 20120715
  2. BIRTH CONTROL [Concomitant]

REACTIONS (2)
  - RESPIRATORY TRACT CONGESTION [None]
  - CONDITION AGGRAVATED [None]
